FAERS Safety Report 16268461 (Version 3)
Quarter: 2019Q4

REPORT INFORMATION
  Report Type: Spontaneous
  Country: FR (occurrence: FR)
  Receive Date: 20190503
  Receipt Date: 20191002
  Transmission Date: 20200122
  Serious: Yes (Life-Threatening, Hospitalization, Other)
  Sender: FDA-Public Use
  Company Number: FR-AUROBINDO-AUR-APL-2019-023888

PATIENT
  Sex: Male
  Weight: 70 kg

DRUGS (16)
  1. NOVONORM [Suspect]
     Active Substance: REPAGLINIDE
     Indication: TYPE 2 DIABETES MELLITUS
     Dosage: 2 MILLIGRAM, ONCE A DAY
     Route: 048
  2. METHYLPREDNISOLONE. [Suspect]
     Active Substance: METHYLPREDNISOLONE
     Indication: CHEMOTHERAPY
     Dosage: 60 MILLIGRAM, ONCE A DAY
     Route: 042
     Dates: start: 20180829, end: 20180829
  3. ZOPHREN [Suspect]
     Active Substance: ONDANSETRON
     Indication: VOMITING
     Dosage: 8 MILLIGRAM, ONCE A DAY
     Route: 048
     Dates: start: 20180829, end: 20180831
  4. EMEND [Suspect]
     Active Substance: APREPITANT
     Indication: PROPHYLAXIS
     Dosage: 125 MILLIGRAM, ONCE A DAY
     Route: 048
     Dates: start: 20180829, end: 20180829
  5. CISPLATIN. [Suspect]
     Active Substance: CISPLATIN
     Indication: LUNG NEOPLASM MALIGNANT
     Dosage: 200 MILLIGRAM, ONCE A DAY
     Route: 042
     Dates: start: 20180829, end: 20180829
  6. EMEND [Suspect]
     Active Substance: APREPITANT
     Indication: VOMITING
     Dosage: 80 MILLIGRAM, ONCE A DAY
     Route: 048
     Dates: start: 20180830, end: 20180831
  7. CORTANCYL [Suspect]
     Active Substance: PREDNISONE
     Indication: CHEMOTHERAPY
     Dosage: 20 MILLIGRAM, ONCE A DAY
     Route: 048
  8. EMEND [Suspect]
     Active Substance: APREPITANT
     Indication: NAUSEA
  9. METFORMIN [Suspect]
     Active Substance: METFORMIN HYDROCHLORIDE
     Dosage: 1 DOSAGE FORM, ONCE A DAY
     Route: 065
     Dates: end: 20181106
  10. ZOPHREN [Suspect]
     Active Substance: ONDANSETRON
     Indication: NAUSEA
  11. KARDEGIC [Suspect]
     Active Substance: ASPIRIN DL-LYSINE
     Indication: PROPHYLAXIS
     Dosage: 75 MILLIGRAM, ONCE A DAY
     Route: 048
  12. BISOCE [Suspect]
     Active Substance: BISOPROLOL
     Dosage: 1 MILLIGRAM, ONCE A DAY
     Route: 065
  13. ZOPHREN [Suspect]
     Active Substance: ONDANSETRON
     Indication: PROPHYLAXIS
  14. METFORMIN [Suspect]
     Active Substance: METFORMIN HYDROCHLORIDE
     Indication: DIABETES MELLITUS
     Dosage: 3 DOSAGE FORM, ONCE A DAY
     Route: 048
     Dates: end: 20181106
  15. ETOPOSIDE. [Suspect]
     Active Substance: ETOPOSIDE
     Indication: LUNG NEOPLASM MALIGNANT
     Dosage: 200 MILLIGRAM, ONCE A DAY
     Route: 042
     Dates: start: 20180829, end: 20180831
  16. BISOCE [Suspect]
     Active Substance: BISOPROLOL
     Indication: TYPE 2 DIABETES MELLITUS
     Dosage: 2 MILLIGRAM, ONCE A DAY
     Route: 048

REACTIONS (2)
  - Renal failure [Not Recovered/Not Resolved]
  - Renal tubular necrosis [Not Recovered/Not Resolved]

NARRATIVE: CASE EVENT DATE: 20180902
